FAERS Safety Report 9703627 (Version 1)
Quarter: 2013Q4

REPORT INFORMATION
  Report Type: Spontaneous
  Country: US (occurrence: US)
  Receive Date: 20131122
  Receipt Date: 20131122
  Transmission Date: 20140711
  Serious: No
  Sender: FDA-Public Use
  Company Number: US-PFIZER INC-2013333698

PATIENT
  Age: 82 Year
  Sex: Male
  Weight: 92.97 kg

DRUGS (4)
  1. GABAPENTIN [Suspect]
     Indication: DIABETIC NEUROPATHY
     Dosage: 600 MG, 3X/DAY
     Route: 048
     Dates: start: 2011
  2. GABAPENTIN [Suspect]
     Indication: DIABETIC NEUROPATHY
     Dosage: 400 MG, 3X/DAY
     Route: 048
     Dates: start: 2011
  3. LYRICA [Suspect]
     Indication: DIABETIC NEUROPATHY
     Dosage: 75 MG, 2X/DAY
     Route: 048
     Dates: start: 201309, end: 2013
  4. LYRICA [Suspect]
     Dosage: 150 MG (BY TAKING 2 CAPSULES OF 75MG), 2X/DAY
     Route: 048
     Dates: start: 2013, end: 20131008

REACTIONS (3)
  - Off label use [Unknown]
  - Pain [Not Recovered/Not Resolved]
  - Drug ineffective for unapproved indication [Unknown]
